FAERS Safety Report 4525862-9 (Version None)
Quarter: 2004Q4

REPORT INFORMATION
  Report Type: 
  Country: None (occurrence: None)
  Receive Date: 20041124
  Receipt Date: 20031223
  Transmission Date: 20050328
  Serious: Yes (Other)
  Sender: FDA-Public Use
  Company Number: 2003126693

PATIENT
  Age: 72 Year
  Sex: Female
  Weight: 66.2 kg

DRUGS (8)
  1. TIKOSYN [Suspect]
     Indication: ATRIAL FIBRILLATION
     Dosage: ORAL
     Route: 048
     Dates: start: 20031219
  2. DILTIAZEM [Concomitant]
  3. POTASSIUM (POTASSIUM) [Concomitant]
  4. CONJUGATED ESTROGENS [Concomitant]
  5. PROPYLTHIOURACIL [Concomitant]
  6. SUCRALFATE [Concomitant]
  7. MAGNESIUM (MAGNESIUM) [Concomitant]
  8. WARFARIN SODIUM [Concomitant]

REACTIONS (1)
  - ELECTROCARDIOGRAM QT CORRECTED INTERVAL PROLONGED [None]
